FAERS Safety Report 4831228-4 (Version None)
Quarter: 2005Q4

REPORT INFORMATION
  Report Type: 
  Country: None (occurrence: None)
  Receive Date: 20051114
  Receipt Date: 20051031
  Transmission Date: 20060501
  Serious: Yes (Other)
  Sender: FDA-Public Use
  Company Number: 12798

PATIENT
  Age: 78 Year
  Sex: Female
  Weight: 60 kg

DRUGS (3)
  1. PAMIDRONATE DISODIUM [Suspect]
     Indication: OSTEOARTHRITIS
     Dates: start: 20050927, end: 20050927
  2. IBUPROFEN [Suspect]
     Indication: OSTEOARTHRITIS
     Dosage: 200 MG TID, PO
     Route: 048
     Dates: start: 20051008, end: 20051011
  3. DIHYDROCODEINE [Suspect]
     Indication: OSTEOARTHRITIS
     Dates: start: 20051006, end: 20051001

REACTIONS (1)
  - ERYTHEMA MULTIFORME [None]
